FAERS Safety Report 13839676 (Version 1)
Quarter: 2017Q3

REPORT INFORMATION
  Report Type: Spontaneous
  Country: US (occurrence: US)
  Receive Date: 20170805
  Receipt Date: 20170805
  Transmission Date: 20171127
  Serious: Yes (Hospitalization)
  Sender: FDA-Public Use
  Company Number: None

PATIENT
  Age: 52 Year
  Sex: Male

DRUGS (9)
  1. DAPSONE. [Suspect]
     Active Substance: DAPSONE
     Indication: PROPHYLAXIS
     Route: 048
     Dates: start: 20170321, end: 20170402
  2. MULTIVITAMIN [Concomitant]
     Active Substance: VITAMINS
  3. NYSTATIN. [Concomitant]
     Active Substance: NYSTATIN
  4. TACROLIMUS. [Concomitant]
     Active Substance: TACROLIMUS
  5. ESOMEPRAZOLE [Concomitant]
     Active Substance: ESOMEPRAZOLE
  6. ACYCLOVIR. [Concomitant]
     Active Substance: ACYCLOVIR
  7. PREDNISONE. [Concomitant]
     Active Substance: PREDNISONE
  8. URSODIAL [Concomitant]
  9. AZATHIOPRINE. [Concomitant]
     Active Substance: AZATHIOPRINE

REACTIONS (3)
  - Diarrhoea [None]
  - Acute kidney injury [None]
  - Abdominal tenderness [None]

NARRATIVE: CASE EVENT DATE: 20170402
